FAERS Safety Report 9753859 (Version 1)
Quarter: 2013Q4

REPORT INFORMATION
  Report Type: Spontaneous
  Country: US (occurrence: US)
  Receive Date: 20131213
  Receipt Date: 20131213
  Transmission Date: 20140711
  Serious: No
  Sender: FDA-Public Use
  Company Number: US-GILEAD-2010-0027853

PATIENT
  Age: 72 Year
  Sex: Female
  Weight: 59.87 kg

DRUGS (10)
  1. LETAIRIS [Suspect]
     Indication: PULMONARY ARTERIAL HYPERTENSION
     Route: 048
     Dates: start: 20080209
  2. ADCIRCA [Concomitant]
  3. COUMADIN [Concomitant]
  4. LASIX [Concomitant]
  5. METOPROLOL [Concomitant]
  6. LANOXIN [Concomitant]
  7. HUMULIN N [Concomitant]
  8. LIPITOR [Concomitant]
  9. PROZAC [Concomitant]
  10. ALPHA LIPOIC [Concomitant]

REACTIONS (1)
  - Pneumonia [Recovering/Resolving]
